FAERS Safety Report 12553336 (Version 1)
Quarter: 2016Q3

REPORT INFORMATION
  Report Type: Spontaneous
  Country: US (occurrence: US)
  Receive Date: 20160713
  Receipt Date: 20160713
  Transmission Date: 20161109
  Serious: Yes (Other)
  Sender: FDA-Public Use
  Company Number: US-TEVA-671427USA

PATIENT
  Age: 44 Year
  Sex: Female

DRUGS (1)
  1. ZECUITY [Suspect]
     Active Substance: SUMATRIPTAN SUCCINATE
     Route: 062
     Dates: start: 201606, end: 201606

REACTIONS (4)
  - Application site scar [Unknown]
  - Incorrect drug administration duration [Unknown]
  - Application site erythema [Unknown]
  - Application site discolouration [Unknown]

NARRATIVE: CASE EVENT DATE: 201606
